FAERS Safety Report 24372395 (Version 1)
Quarter: 2024Q3

REPORT INFORMATION
  Report Type: Spontaneous
  Country: FR (occurrence: FR)
  Receive Date: 20240927
  Receipt Date: 20240927
  Transmission Date: 20241016
  Serious: Yes (Hospitalization)
  Sender: RANBAXY
  Company Number: FR-AFSSAPS-MA2024000988

PATIENT
  Age: 59 Year
  Sex: Female

DRUGS (3)
  1. ACETAMINOPHEN [Suspect]
     Active Substance: ACETAMINOPHEN
     Indication: Anaesthetic premedication
     Dosage: 1000MG, UNK
     Route: 048
     Dates: start: 20240514, end: 20240514
  2. KETOPROFEN [Suspect]
     Active Substance: KETOPROFEN
     Indication: Anaesthetic premedication
     Dosage: 100MG, UNK
     Route: 048
     Dates: start: 20240514, end: 20240514
  3. ONDANSETRON [Suspect]
     Active Substance: ONDANSETRON
     Indication: Anaesthetic premedication
     Dosage: 8MG, UNK
     Route: 048
     Dates: start: 20240514, end: 20240514

REACTIONS (1)
  - Hypersensitivity [Recovered/Resolved]

NARRATIVE: CASE EVENT DATE: 20240514
